FAERS Safety Report 12741107 (Version 1)
Quarter: 2016Q3

REPORT INFORMATION
  Report Type: Report from Study
  Country: CO (occurrence: CO)
  Receive Date: 20160914
  Receipt Date: 20160914
  Transmission Date: 20161109
  Serious: Yes (Hospitalization)
  Sender: FDA-Public Use
  Company Number: CO-ALEXION PHARMACEUTICALS INC.-A201606700

PATIENT
  Age: 13 Year
  Sex: Female

DRUGS (2)
  1. SOLIRIS [Suspect]
     Active Substance: ECULIZUMAB
     Dosage: 900 MG, Q2W
     Route: 042
     Dates: start: 20150130
  2. SOLIRIS [Suspect]
     Active Substance: ECULIZUMAB
     Indication: HAEMOLYTIC URAEMIC SYNDROME
     Dosage: 600 MG, QW
     Route: 042
     Dates: start: 20150117, end: 20150124

REACTIONS (2)
  - Pharyngeal oedema [Recovering/Resolving]
  - Flushing [Unknown]

NARRATIVE: CASE EVENT DATE: 20160905
